FAERS Safety Report 8324579-2 (Version None)
Quarter: 2012Q1

REPORT INFORMATION
  Report Type: 
  Country: None (occurrence: None)
  Receive Date: 20120315
  Receipt Date: 20101112
  Transmission Date: 20120608
  Serious: No
  Sender: FDA-Public Use
  Company Number: PHHY2010US75682

PATIENT
  Age: 69 Year
  Sex: Female

DRUGS (2)
  1. VOLTAREN [Concomitant]
  2. GILENYA [Suspect]
     Indication: MULTIPLE SCLEROSIS
     Dosage: 0.5 MG, QD, ORAL
     Route: 048
     Dates: start: 20101104, end: 20101112

REACTIONS (6)
  - OROPHARYNGEAL PAIN [None]
  - PAIN [None]
  - DIARRHOEA [None]
  - COUGH [None]
  - BODY TEMPERATURE INCREASED [None]
  - PYREXIA [None]
